FAERS Safety Report 10716625 (Version 1)
Quarter: 2015Q1

REPORT INFORMATION
  Report Type: Spontaneous
  Country: US (occurrence: None)
  Receive Date: 20150115
  Receipt Date: 20150115
  Transmission Date: 20150721
  Serious: No
  Sender: FDA-Public Use
  Company Number: None

PATIENT
  Age: 63 Year
  Sex: Female
  Weight: 57.15 kg

DRUGS (16)
  1. ZOFRAN [Concomitant]
     Active Substance: ONDANSETRON HYDROCHLORIDE
  2. AMBIEN [Concomitant]
     Active Substance: ZOLPIDEM TARTRATE
  3. ROPINIROLE. [Concomitant]
     Active Substance: ROPINIROLE
  4. VITAMIN D [Concomitant]
     Active Substance: CHOLECALCIFEROL
  5. OSPHENA [Suspect]
     Active Substance: OSPEMIFENE
     Indication: VULVOVAGINAL DRYNESS
     Dates: end: 20140801
  6. GABAPENTIN. [Concomitant]
     Active Substance: GABAPENTIN
  7. ASA [Concomitant]
     Active Substance: ASPIRIN
  8. EPIPEN [Concomitant]
     Active Substance: EPINEPHRINE
  9. TOPIRAMATE. [Concomitant]
     Active Substance: TOPIRAMATE
  10. ROBAXON [Concomitant]
  11. MULTIPLE VIT. [Concomitant]
  12. MORPHINE [Concomitant]
     Active Substance: MORPHINE
  13. PROBIOTIC [Concomitant]
     Active Substance: PROBIOTICS NOS
  14. DUONEB [Concomitant]
     Active Substance: ALBUTEROL SULFATE\IPRATROPIUM BROMIDE
  15. OXYCODONE HCL [Concomitant]
     Active Substance: OXYCODONE HYDROCHLORIDE
  16. PANTOPRAZOLE [Concomitant]
     Active Substance: PANTOPRAZOLE SODIUM

REACTIONS (2)
  - Pancreatitis [None]
  - Malaise [None]
